FAERS Safety Report 18726651 (Version 2)
Quarter: 2021Q1

REPORT INFORMATION
  Report Type: Report from Study
  Country: CO (occurrence: CO)
  Receive Date: 20210111
  Receipt Date: 20210122
  Transmission Date: 20210419
  Serious: Yes (Other)
  Sender: FDA-Public Use
  Company Number: NVSC2021CO004073

PATIENT
  Sex: Male
  Weight: 54 kg

DRUGS (2)
  1. REVOLADE [Suspect]
     Active Substance: ELTROMBOPAG OLAMINE
     Indication: IMMUNE THROMBOCYTOPENIA
     Dosage: 50 MG, QD (REST OF THE WEEK ONE TABLET OF 50 MG)
     Route: 048
     Dates: start: 20201008
  2. REVOLADE [Suspect]
     Active Substance: ELTROMBOPAG OLAMINE
     Dosage: UNK, (2 TABLETS OF 50 MG TUESDAYS, THURSDAYS AND SATURDAYS)
     Route: 048

REACTIONS (6)
  - Platelet count decreased [Unknown]
  - External ear inflammation [Unknown]
  - Product prescribing error [Unknown]
  - Platelet count increased [Unknown]
  - Ear pain [Unknown]
  - Drug ineffective [Unknown]
